FAERS Safety Report 24209565 (Version 1)
Quarter: 2024Q3

REPORT INFORMATION
  Report Type: Report from Study
  Country: DE (occurrence: DE)
  Receive Date: 20240814
  Receipt Date: 20240814
  Transmission Date: 20241016
  Serious: Yes (Other)
  Sender: PFIZER
  Company Number: DE-PFIZER INC-202400233696

PATIENT
  Age: 11 Year
  Sex: Male

DRUGS (7)
  1. CRIZOTINIB [Suspect]
     Active Substance: CRIZOTINIB
     Indication: Anaplastic large cell lymphoma T- and null-cell types
     Dosage: 370 MG/M2, DAILY
     Route: 048
  2. VINBLASTINE [Suspect]
     Active Substance: VINBLASTINE
     Indication: Anaplastic large cell lymphoma T- and null-cell types
     Dosage: 6 MG/M2, PER WEEK
  3. VINBLASTINE [Suspect]
     Active Substance: VINBLASTINE
     Dosage: 4 MG/M2 PER WEEK
  4. DEXAMETHASONE [Concomitant]
     Active Substance: DEXAMETHASONE
     Indication: Prophylaxis
     Dosage: 10 MG/M2, DAILY, 5 DAYS EVERY 4 WEEKS
  5. METHOTREXATE [Concomitant]
     Active Substance: METHOTREXATE
     Indication: Prophylaxis
     Dosage: UNK
     Route: 037
  6. CYTARABINE [Concomitant]
     Active Substance: CYTARABINE
     Indication: Prophylaxis
     Dosage: UNK
     Route: 037
  7. PREDNISOLONE [Concomitant]
     Active Substance: PREDNISOLONE
     Indication: Prophylaxis
     Dosage: UNK
     Route: 037

REACTIONS (4)
  - Ileus paralytic [Recovered/Resolved]
  - Peritonitis bacterial [Recovered/Resolved]
  - Neutropenia [Unknown]
  - Febrile neutropenia [Unknown]
